FAERS Safety Report 7767910-9 (Version None)
Quarter: 2011Q3

REPORT INFORMATION
  Report Type: 
  Country: None (occurrence: None)
  Receive Date: 20110922
  Receipt Date: 20110414
  Transmission Date: 20111222
  Serious: No
  Sender: FDA-Public Use
  Company Number: US-ASTRAZENECA-2011SE21489

PATIENT
  Age: 58 Year
  Sex: Female
  Weight: 56.7 kg

DRUGS (1)
  1. SEROQUEL [Suspect]
     Indication: SLEEP DISORDER
     Dosage: ONE HOUR AFTER DINNER
     Route: 048
     Dates: start: 20060101

REACTIONS (5)
  - THERAPEUTIC RESPONSE UNEXPECTED [None]
  - DRUG TOLERANCE INCREASED [None]
  - OFF LABEL USE [None]
  - INSOMNIA [None]
  - DRUG INEFFECTIVE FOR UNAPPROVED INDICATION [None]
